FAERS Safety Report 9193918 (Version 1)
Quarter: 2013Q1

REPORT INFORMATION
  Report Type: Report from Study
  Country: US (occurrence: US)
  Receive Date: 20130327
  Receipt Date: 20130327
  Transmission Date: 20140127
  Serious: Yes (Other)
  Sender: FDA-Public Use
  Company Number: US-UCBSA-081219

PATIENT
  Age: 22 Year
  Sex: Female
  Weight: 48.1 kg

DRUGS (6)
  1. CIMZIA [Suspect]
     Indication: CROHN^S DISEASE
     Route: 058
     Dates: start: 20100520, end: 2010
  2. CIMZIA [Suspect]
     Indication: CROHN^S DISEASE
     Route: 058
     Dates: start: 20100603
  3. MESALAMINE [Concomitant]
     Indication: CROHN^S DISEASE
     Dosage: UNKNOWN DOSE
     Dates: start: 20081007
  4. BUDESONIDE [Concomitant]
     Indication: CROHN^S DISEASE
     Dosage: UNKNOWN DOSE
     Dates: start: 20100414
  5. BIAXIN [Concomitant]
     Dosage: 10 DAYS; 20
     Route: 048
  6. AMOXICILLIN [Concomitant]
     Dosage: 10 DAYS; 30
     Route: 048

REACTIONS (1)
  - Staphylococcal infection [Recovered/Resolved]
